FAERS Safety Report 8952361 (Version 1)
Quarter: 2012Q4

REPORT INFORMATION
  Report Type: 
  Country: US (occurrence: US)
  Receive Date: 20121205
  Receipt Date: 20121205
  Transmission Date: 20130627
  Serious: No
  Sender: FDA-Public Use
  Company Number: US-BIOGENIDEC-2012BI056370

PATIENT
  Age: 65 Year
  Sex: Female

DRUGS (5)
  1. TYSABRI [Suspect]
     Indication: MULTIPLE SCLEROSIS
     Route: 042
     Dates: start: 20121113
  2. VITAMIN D [Concomitant]
     Indication: OSTEOPENIA
     Dates: start: 2007
  3. CALCIUM [Concomitant]
     Indication: OSTEOPENIA
     Dates: start: 2007
  4. BACLOFEN [Concomitant]
     Indication: MUSCLE SPASMS
     Dates: start: 2010
  5. TRAMADOL [Concomitant]
     Indication: BACK PAIN
     Dates: start: 201209

REACTIONS (1)
  - Arthralgia [Not Recovered/Not Resolved]
